FAERS Safety Report 9298488 (Version 2)
Quarter: 2013Q2

REPORT INFORMATION
  Report Type: Spontaneous
  Country: US (occurrence: US)
  Receive Date: 20130520
  Receipt Date: 20130617
  Transmission Date: 20140414
  Serious: No
  Sender: FDA-Public Use
  Company Number: US-ASTRAZENECA-2013SE31807

PATIENT
  Age: 55 Year
  Sex: Male
  Weight: 87.5 kg

DRUGS (2)
  1. NEXIUM [Suspect]
     Indication: DYSPEPSIA
     Route: 048
  2. NORVASC [Concomitant]
     Indication: BLOOD PRESSURE ABNORMAL

REACTIONS (5)
  - Abdominal distension [Unknown]
  - Dyspepsia [Unknown]
  - Eructation [Unknown]
  - Drug ineffective [Unknown]
  - Intentional drug misuse [Unknown]
